FAERS Safety Report 23160049 (Version 1)
Quarter: 2023Q4

REPORT INFORMATION
  Report Type: Spontaneous
  Country: None (occurrence: US)
  Receive Date: 20231108
  Receipt Date: 20231108
  Transmission Date: 20240110
  Serious: No
  Sender: FDA-Public Use
  Company Number: US-Breckenridge Pharmaceutical, Inc.-2148000

PATIENT
  Age: 39 Year
  Sex: Female

DRUGS (1)
  1. OXCARBAZEPINE [Suspect]
     Active Substance: OXCARBAZEPINE
     Indication: Nervous system disorder
     Route: 048
     Dates: start: 202208

REACTIONS (2)
  - Dysphagia [Unknown]
  - Product contamination physical [Unknown]
